FAERS Safety Report 8168392-8 (Version None)
Quarter: 2012Q1

REPORT INFORMATION
  Report Type: 
  Country: None (occurrence: None)
  Receive Date: 20120227
  Receipt Date: 20120220
  Transmission Date: 20120608
  Serious: Yes (Other)
  Sender: FDA-Public Use
  Company Number: US-MERCK-1202USA03149

PATIENT
  Age: 64 Year
  Sex: Female

DRUGS (3)
  1. ACTOPLUS MET [Suspect]
     Route: 065
  2. JANUVIA [Suspect]
     Indication: TYPE 2 DIABETES MELLITUS
     Route: 048
     Dates: start: 20090101, end: 20111201
  3. INSULIN [Concomitant]
     Route: 065

REACTIONS (4)
  - BLOOD GLUCOSE ABNORMAL [None]
  - RENAL DISORDER [None]
  - VOLVULUS [None]
  - RENAL IMPAIRMENT [None]
